FAERS Safety Report 20341127 (Version 3)
Quarter: 2022Q1

REPORT INFORMATION
  Report Type: Spontaneous
  Country: US (occurrence: US)
  Receive Date: 20220117
  Receipt Date: 20220224
  Transmission Date: 20220423
  Serious: No
  Sender: FDA-Public Use
  Company Number: US-GSKCCFUS-Case-01267080_AE-74101

PATIENT
  Sex: Female

DRUGS (1)
  1. BENLYSTA [Suspect]
     Active Substance: BELIMUMAB
     Indication: Systemic lupus erythematosus
     Dosage: 200 MG/ML
     Route: 058
     Dates: start: 2021

REACTIONS (8)
  - Injection site discolouration [Not Recovered/Not Resolved]
  - Influenza [Recovered/Resolved]
  - Injection site pain [Not Recovered/Not Resolved]
  - Injection site haemorrhage [Recovered/Resolved]
  - Wrong technique in device usage process [Recovered/Resolved]
  - Accidental exposure to product [Unknown]
  - Incorrect dose administered [Unknown]
  - Product complaint [Unknown]

NARRATIVE: CASE EVENT DATE: 20210101
